FAERS Safety Report 4717760-2 (Version None)
Quarter: 2005Q3

REPORT INFORMATION
  Report Type: 
  Country: None (occurrence: None)
  Receive Date: 20050715
  Receipt Date: 20050415
  Transmission Date: 20060218
  Serious: Yes (Hospitalization)
  Sender: FDA-Public Use
  Company Number: 2005-00812

PATIENT
  Age: 70 Year
  Sex: Male

DRUGS (2)
  1. INTEGRILIN [Suspect]
     Indication: CORONARY ANGIOPLASTY
     Dates: start: 20050414
  2. HEPARIN [Suspect]
     Indication: CORONARY ANGIOPLASTY
     Dates: start: 20050414

REACTIONS (1)
  - THROMBOCYTOPENIA [None]
